FAERS Safety Report 10640478 (Version 1)
Quarter: 2014Q4

REPORT INFORMATION
  Report Type: Report from Study
  Country: US (occurrence: US)
  Receive Date: 20141209
  Receipt Date: 20141209
  Transmission Date: 20150529
  Serious: Yes (Death, Other)
  Sender: FDA-Public Use
  Company Number: US-CELGENE-USA-2014120729

PATIENT

DRUGS (3)
  1. DEXAMETHASONE. [Suspect]
     Active Substance: DEXAMETHASONE
     Indication: AMYLOIDOSIS
     Route: 048
  2. ASPIRIN. [Concomitant]
     Active Substance: ASPIRIN
     Indication: PROPHYLAXIS
     Route: 065
  3. POMALYST [Suspect]
     Active Substance: POMALIDOMIDE
     Indication: AMYLOIDOSIS
     Dosage: 2MG-3MG-4MG
     Route: 048

REACTIONS (10)
  - Pneumonia [Unknown]
  - Fatigue [Unknown]
  - Amyloidosis [Unknown]
  - Gastrointestinal haemorrhage [Fatal]
  - Sepsis [Fatal]
  - Renal failure [Unknown]
  - Anaemia [Unknown]
  - Pneumonia legionella [Fatal]
  - Brain natriuretic peptide increased [Unknown]
  - Neutropenia [Unknown]
